FAERS Safety Report 8621518-1 (Version None)
Quarter: 2012Q3

REPORT INFORMATION
  Report Type: 
  Country: None (occurrence: None)
  Receive Date: 20120824
  Receipt Date: 20120820
  Transmission Date: 20120928
  Serious: Yes (Other)
  Sender: FDA-Public Use
  Company Number: GB-009507513-1208GBR009001

PATIENT

DRUGS (4)
  1. COZAAR [Suspect]
     Indication: BLOOD PRESSURE
     Dosage: 100 MG, UNK
     Route: 048
  2. LOSARTAN POTASSIUM [Suspect]
  3. AMLODIPINE [Suspect]
     Indication: BLOOD PRESSURE
  4. AMLODIPINE BESYLATE [Concomitant]

REACTIONS (6)
  - TRACHEAL DISORDER [None]
  - CHEST DISCOMFORT [None]
  - CHEST PAIN [None]
  - MOUTH ULCERATION [None]
  - COUGH [None]
  - DYSPNOEA [None]
